FAERS Safety Report 17355230 (Version 6)
Quarter: 2025Q4

REPORT INFORMATION
  Report Type: Spontaneous
  Country: JP (occurrence: JP)
  Receive Date: 20200131
  Receipt Date: 20251125
  Transmission Date: 20260119
  Serious: Yes (Other)
  Sender: SANOFI AVENTIS
  Company Number: JP-SAKK-2020SA023521AA

PATIENT
  Age: 38 Year
  Sex: Female
  Weight: 66 kg

DRUGS (8)
  1. DUPIXENT [Suspect]
     Active Substance: DUPILUMAB
     Indication: Asthma
     Dosage: 300 MG, QOW
     Route: 058
     Dates: start: 20191022, end: 2023
  2. DUPIXENT [Suspect]
     Active Substance: DUPILUMAB
     Dosage: 600 MG, 1X
     Route: 058
     Dates: start: 20191009, end: 20191009
  3. THEOPHYLLINE [Concomitant]
     Active Substance: THEOPHYLLINE
     Indication: Asthma
     Dosage: 200 MG, BID
     Route: 048
     Dates: start: 201205
  4. XYZAL [Concomitant]
     Active Substance: LEVOCETIRIZINE DIHYDROCHLORIDE
     Indication: Asthma
     Dosage: 5 MG, QD
     Route: 048
     Dates: start: 201207
  5. ETHINYL ESTRADIOL\NORGESTREL [Concomitant]
     Active Substance: ETHINYL ESTRADIOL\NORGESTREL
     Indication: Product used for unknown indication
     Dosage: QD
     Route: 048
  6. LORAZEPAM [Concomitant]
     Active Substance: LORAZEPAM
     Indication: Product used for unknown indication
     Dosage: 0.5 MG, QD
     Route: 048
  7. HERBALS [Concomitant]
     Active Substance: HERBALS
     Indication: Product used for unknown indication
     Dosage: 2.5 G, TID
     Route: 048
  8. PRANLUKAST [Concomitant]
     Active Substance: PRANLUKAST
     Indication: Asthma
     Dosage: 225 MG, BID
     Route: 048
     Dates: start: 201910

REACTIONS (11)
  - Colitis ulcerative [Recovered/Resolved]
  - Mucous stools [Recovered/Resolved]
  - Haematochezia [Recovered/Resolved]
  - Abdominal tenderness [Recovered/Resolved]
  - Gastric mucosa erythema [Recovered/Resolved]
  - Vitiligo [Recovered/Resolved]
  - Abdominal pain [Recovered/Resolved]
  - Gastrointestinal inflammation [Recovered/Resolved]
  - Inflammation [Recovered/Resolved]
  - Skin exfoliation [Recovered/Resolved]
  - Abscess intestinal [Recovered/Resolved]

NARRATIVE: CASE EVENT DATE: 20191001
